FAERS Safety Report 7874802-3 (Version None)
Quarter: 2011Q4

REPORT INFORMATION
  Report Type: 
  Country: None (occurrence: None)
  Receive Date: 20111031
  Receipt Date: 20111020
  Transmission Date: 20120403
  Serious: Yes (Other)
  Sender: FDA-Public Use
  Company Number: US-AMGEN-USASP2011054551

PATIENT
  Sex: Female

DRUGS (26)
  1. PREDNISONE [Concomitant]
     Dosage: UNK UNK, QD
     Route: 048
  2. SYNTHROID [Concomitant]
  3. FOLIC ACID [Concomitant]
     Dosage: 1 MG, QD
     Route: 048
  4. CENTRUM SILVER                     /01292501/ [Concomitant]
  5. LASIX [Concomitant]
     Dosage: 40 MG, QD
  6. CORTICOSTEROIDS [Concomitant]
     Indication: IDIOPATHIC THROMBOCYTOPENIC PURPURA
  7. IVIGLOB-EX [Concomitant]
     Indication: IDIOPATHIC THROMBOCYTOPENIC PURPURA
  8. B COMPLEX                          /00212701/ [Concomitant]
  9. OMEGA 3                            /00931501/ [Concomitant]
     Route: 048
  10. CYTOXAN [Concomitant]
     Dosage: 50 MG, QD
  11. MULTIVITAMIN                       /00097801/ [Concomitant]
     Dosage: UNK UNK, QD
     Route: 048
  12. VITAMIN D [Concomitant]
     Dosage: 1000 IU, QD
  13. DECADRON [Concomitant]
     Dosage: 4 MG, QD
  14. VITAMIN B12                        /00056201/ [Concomitant]
     Dosage: 1000 MG, QD
  15. GUAIFENEX DM [Concomitant]
  16. THIAMINE HCL [Concomitant]
  17. FOSAMAX [Concomitant]
     Dosage: 70 MG, QWK
  18. RESTASIS [Concomitant]
     Dosage: 1 GTT, BID
     Route: 047
  19. THERA TEARS [Concomitant]
  20. GLUCOSAMINE [Concomitant]
     Dosage: 1000 MG, QD
     Route: 048
  21. VIACTIV CALCIUM PLUS VITAMIN D + K [Concomitant]
  22. ACETAMINOPHEN [Concomitant]
     Dosage: UNK UNK, PRN
  23. LEVAQUIN [Concomitant]
     Dosage: 500 MG, QD
  24. NPLATE [Suspect]
     Indication: IDIOPATHIC THROMBOCYTOPENIC PURPURA
     Dates: start: 20111013
  25. PLAQUENIL [Concomitant]
     Dosage: 200 MG, BID
     Route: 048
  26. VITAMIN D [Concomitant]
     Dosage: 2000 MG, QD

REACTIONS (2)
  - NEUTROPENIA [None]
  - THROMBOCYTOPENIA [None]
